FAERS Safety Report 8294542-9 (Version None)
Quarter: 2012Q2

REPORT INFORMATION
  Report Type: 
  Country: None (occurrence: None)
  Receive Date: 20120418
  Receipt Date: 20120416
  Transmission Date: 20120825
  Serious: Yes (Other)
  Sender: FDA-Public Use
  Company Number: BR-BAYER-2012-036753

PATIENT
  Age: 37 Year
  Sex: Female
  Weight: 62 kg

DRUGS (3)
  1. AVELOX [Suspect]
     Indication: SINUSITIS
     Dosage: 1 DF, QD
     Route: 048
     Dates: start: 20120415
  2. ACETAMINOPHEN [Concomitant]
     Dosage: 1 DF, TID
     Route: 048
  3. KETOPROFEN [Concomitant]
     Dosage: 1 DF, BID
     Route: 048

REACTIONS (3)
  - HEADACHE [None]
  - CHROMATURIA [None]
  - HAEMORRHAGE URINARY TRACT [None]
